FAERS Safety Report 13546090 (Version 1)
Quarter: 2017Q2

REPORT INFORMATION
  Report Type: Not Available
  Country: CH (occurrence: CH)
  Receive Date: 20170515
  Receipt Date: 20170515
  Transmission Date: 20170830
  Serious: Yes (Death)
  Sender: FDA-Public Use
  Company Number: CH-ANIPHARMA-2017-CH-000003

PATIENT
  Age: 32 Year
  Sex: Male

DRUGS (2)
  1. COCAINE [Suspect]
     Active Substance: COCAINE
  2. LORAZEPAM (NON-SPECIFIC) [Suspect]
     Active Substance: LORAZEPAM
     Route: 065

REACTIONS (1)
  - Diabetic ketoacidosis [Fatal]
